FAERS Safety Report 15468270 (Version 5)
Quarter: 2019Q2

REPORT INFORMATION
  Report Type: Report from Study
  Country: None (occurrence: AT)
  Receive Date: 20181005
  Receipt Date: 20190401
  Transmission Date: 20190711
  Serious: Yes (Hospitalization, Other)
  Sender: FDA-Public Use
  Company Number: AT-ABBVIE-18K-009-2397652-00

PATIENT
  Age: 52 Year
  Sex: Male

DRUGS (5)
  1. DUODOPA [Suspect]
     Active Substance: CARBIDOPA\LEVODOPA
     Route: 050
  2. DUODOPA [Suspect]
     Active Substance: CARBIDOPA\LEVODOPA
     Route: 050
  3. DUODOPA [Suspect]
     Active Substance: CARBIDOPA\LEVODOPA
     Indication: PARKINSONISM
     Dosage: MD: 8ML, CR DAILY RATE: 3.5ML/H, ED: 1.5ML
     Route: 050
  4. DUODOPA [Suspect]
     Active Substance: CARBIDOPA\LEVODOPA
     Dosage: MD: 7ML, CR DAYTIME: 3ML/H, ED: 1.5ML
     Route: 050
  5. DUODOPA [Suspect]
     Active Substance: CARBIDOPA\LEVODOPA
     Indication: PARKINSON^S DISEASE
     Dosage: MD: 7ML, CR DAILY RATE 3.2ML, ED: 1.5ML
     Route: 050
     Dates: start: 20170419, end: 2018

REACTIONS (12)
  - Vomiting [Recovered/Resolved]
  - Syncope [Unknown]
  - Excessive granulation tissue [Recovered/Resolved]
  - Weight decreased [Recovered/Resolved]
  - Stoma site erythema [Recovered/Resolved]
  - Polyneuropathy [Recovering/Resolving]
  - Bradykinesia [Recovered/Resolved]
  - Muscle spasms [Not Recovered/Not Resolved]
  - Muscle rigidity [Not Recovered/Not Resolved]
  - Visual impairment [Unknown]
  - Stoma site hypergranulation [Recovered/Resolved]
  - Syncope [Recovered/Resolved]

NARRATIVE: CASE EVENT DATE: 20170901
